FAERS Safety Report 12825424 (Version 2)
Quarter: 2016Q4

REPORT INFORMATION
  Report Type: Spontaneous
  Country: AU (occurrence: AU)
  Receive Date: 20161007
  Receipt Date: 20161025
  Transmission Date: 20170207
  Serious: Yes (Life-Threatening, Hospitalization, Other)
  Sender: FDA-Public Use
  Company Number: AU-MYLANLABS-2016M1043199

PATIENT

DRUGS (1)
  1. DICLOFENAC [Suspect]
     Active Substance: DICLOFENAC
     Indication: BACK PAIN
     Dosage: FIFTY-SIX 50MG DICLOFENAC TABLETS PER WEEK
     Route: 048

REACTIONS (5)
  - Overdose [Recovered/Resolved]
  - Renal tubular acidosis [Recovered/Resolved]
  - Hypokalaemia [Recovered/Resolved]
  - Acidosis hyperchloraemic [Recovered/Resolved]
  - Microcytic anaemia [Recovered/Resolved]
